FAERS Safety Report 11815845 (Version 2)
Quarter: 2015Q4

REPORT INFORMATION
  Report Type: Spontaneous
  Country: US (occurrence: US)
  Receive Date: 20151209
  Receipt Date: 20151217
  Transmission Date: 20160305
  Serious: Yes (Death, Other)
  Sender: FDA-Public Use
  Company Number: US-BMSGILMSD-2015-0186779

PATIENT
  Age: 45 Year
  Sex: Male

DRUGS (1)
  1. ATRIPLA [Suspect]
     Active Substance: EFAVIRENZ\EMTRICITABINE\TENOFOVIR DISOPROXIL FUMARATE
     Indication: HIV INFECTION
     Dosage: UNK
     Route: 048
     Dates: start: 201303

REACTIONS (2)
  - Burkitt^s lymphoma [Fatal]
  - Immune reconstitution inflammatory syndrome [Fatal]

NARRATIVE: CASE EVENT DATE: 2013
